FAERS Safety Report 6548181-8 (Version None)
Quarter: 2010Q1

REPORT INFORMATION
  Report Type: 
  Country: None (occurrence: None)
  Receive Date: 20100124
  Receipt Date: 20090306
  Transmission Date: 20100710
  Serious: No
  Sender: FDA-Public Use
  Company Number: US-ALLERGAN-0902452US

PATIENT
  Sex: Female

DRUGS (3)
  1. RESTASIS [Suspect]
     Indication: DRY EYE
     Dosage: 1 GTT, BID
     Route: 047
  2. SYSTANE PLUS [Concomitant]
     Dosage: UNK, PRN
     Route: 047
  3. HYPOTEARS DDPF [Concomitant]
     Dosage: UNK, PRN
     Route: 047

REACTIONS (7)
  - BLEPHAROPACHYNSIS [None]
  - BURNING SENSATION [None]
  - ERYTHEMA OF EYELID [None]
  - EYE SWELLING [None]
  - EYELID OEDEMA [None]
  - EYELIDS PRURITUS [None]
  - SKIN EXFOLIATION [None]
